FAERS Safety Report 10045886 (Version 1)
Quarter: 2014Q1

REPORT INFORMATION
  Report Type: Spontaneous
  Country: IT (occurrence: IT)
  Receive Date: 20140329
  Receipt Date: 20140329
  Transmission Date: 20141002
  Serious: Yes (Other)
  Sender: FDA-Public Use
  Company Number: IT-ACCORD-022838

PATIENT
  Age: 54 Year
  Sex: Female

DRUGS (4)
  1. MYCOPHENOLIC ACID [Suspect]
     Indication: SYSTEMIC SCLEROSIS
     Route: 048
     Dates: start: 20130909, end: 20140208
  2. LANSOPRAZOLE [Concomitant]
  3. DIBASE [Concomitant]
  4. NIFEDIPINE [Concomitant]

REACTIONS (4)
  - Mucous stools [Recovered/Resolved]
  - Abdominal pain [Recovered/Resolved]
  - Off label use [Unknown]
  - Haematochezia [Recovered/Resolved]
